FAERS Safety Report 6350303-9 (Version None)
Quarter: 2009Q3

REPORT INFORMATION
  Report Type: 
  Country: None (occurrence: None)
  Receive Date: 20090911
  Receipt Date: 20090622
  Transmission Date: 20100115
  Serious: No
  Sender: FDA-Public Use
  Company Number: US-ABBOTT-07P-163-0362281-00

PATIENT
  Sex: Male
  Weight: 109 kg

DRUGS (3)
  1. HUMIRA [Suspect]
     Indication: PSORIATIC ARTHROPATHY
     Dosage: PEN
     Route: 058
     Dates: start: 20060901
  2. HUMIRA [Suspect]
     Indication: CROHN'S DISEASE
     Dosage: PFS
     Route: 058
     Dates: start: 20050101, end: 20060901
  3. HUMIRA [Suspect]
     Indication: PSORIASIS

REACTIONS (2)
  - ACCIDENTAL NEEDLE STICK [None]
  - INCORRECT DOSE ADMINISTERED [None]
